FAERS Safety Report 9924838 (Version 1)
Quarter: 2014Q1

REPORT INFORMATION
  Report Type: Spontaneous
  Country: US (occurrence: None)
  Receive Date: 20140221
  Receipt Date: 20140221
  Transmission Date: 20141002
  Serious: Yes (Hospitalization)
  Sender: FDA-Public Use
  Company Number: CIO1410674

PATIENT
  Age: 37 Year
  Sex: Male

DRUGS (3)
  1. NYQUIL COLD + FLU [Suspect]
     Indication: COUGH
     Dosage: UNKNOWN , ORAL
     Route: 048
     Dates: start: 2012
  2. DAYQUIL COLD + FLU [Suspect]
     Indication: COUGH
     Dosage: UNKNOWN, ORAL
     Route: 048
     Dates: start: 2012
  3. CHEMOTHERAPEUTICS NOS [Suspect]

REACTIONS (2)
  - Gastric ulcer haemorrhage [None]
  - Platelet count decreased [None]
